FAERS Safety Report 10740229 (Version 2)
Quarter: 2015Q1

REPORT INFORMATION
  Report Type: Spontaneous
  Country: US (occurrence: US)
  Receive Date: 20150127
  Receipt Date: 20150302
  Transmission Date: 20150721
  Serious: Yes (Hospitalization, Other)
  Sender: FDA-Public Use
  Company Number: US-AMGEN-USASP2015006404

PATIENT
  Age: 69 Year
  Sex: Male
  Weight: 73.92 kg

DRUGS (1)
  1. ENBREL [Suspect]
     Active Substance: ETANERCEPT
     Indication: RHEUMATOID ARTHRITIS
     Dosage: 50 MG, QWK
     Route: 065
     Dates: start: 20100630, end: 201209

REACTIONS (2)
  - Rheumatoid arthritis [Not Recovered/Not Resolved]
  - Intervertebral disc operation [Recovered/Resolved]

NARRATIVE: CASE EVENT DATE: 2012
